FAERS Safety Report 13705287 (Version 1)
Quarter: 2017Q2

REPORT INFORMATION
  Report Type: Spontaneous
  Country: GB (occurrence: GB)
  Receive Date: 20170630
  Receipt Date: 20170630
  Transmission Date: 20170830
  Serious: Yes (Other)
  Sender: FDA-Public Use
  Company Number: GB-TEVA-780986ACC

PATIENT
  Sex: Female

DRUGS (4)
  1. DR REDDYS LABS UK CIPROFLOXACIN [Suspect]
     Active Substance: CIPROFLOXACIN HYDROCHLORIDE
     Indication: ESCHERICHIA URINARY TRACT INFECTION
     Dosage: 500 MILLIGRAM DAILY;
     Route: 048
  2. IBUPROFEN. [Suspect]
     Active Substance: IBUPROFEN
     Indication: PRODUCT USED FOR UNKNOWN INDICATION
  3. DR REDDYS LABS UK CIPROFLOXACIN [Suspect]
     Active Substance: CIPROFLOXACIN HYDROCHLORIDE
     Dosage: 1000 MILLIGRAM DAILY;
     Route: 048
  4. DR REDDYS LABS UK CIPROFLOXACIN [Suspect]
     Active Substance: CIPROFLOXACIN HYDROCHLORIDE
     Indication: STAPHYLOCOCCAL INFECTION
     Route: 048

REACTIONS (3)
  - Staphylococcal infection [Unknown]
  - Dizziness [Unknown]
  - Malaise [Unknown]
